FAERS Safety Report 6309565-6 (Version None)
Quarter: 2009Q3

REPORT INFORMATION
  Report Type: 
  Country: None (occurrence: None)
  Receive Date: 20090814
  Receipt Date: 20090804
  Transmission Date: 20100115
  Serious: Yes (Other)
  Sender: FDA-Public Use
  Company Number: PHHY2009MX32609

PATIENT
  Sex: Female

DRUGS (2)
  1. STALEVO 100 [Suspect]
     Indication: PARKINSON'S DISEASE
     Dosage: 200/150/37.5 MG, 4 TABLETS PER DAY
     Route: 048
     Dates: start: 20090501
  2. OMEPRAZOLE [Concomitant]
     Indication: IRRITABLE BOWEL SYNDROME

REACTIONS (2)
  - BLADDER DISCOMFORT [None]
  - CHROMATURIA [None]
